FAERS Safety Report 9849001 (Version 1)
Quarter: 2013Q4

REPORT INFORMATION
  Report Type: Spontaneous
  Country: US (occurrence: None)
  Receive Date: 20131226
  Receipt Date: 20131226
  Transmission Date: 20140711
  Serious: Yes (Hospitalization)
  Sender: FDA-Public Use
  Company Number: PHEH2013US018432

PATIENT
  Age: 49 Year
  Sex: Female

DRUGS (5)
  1. TRILEPTAL (OXCARBAZEPINE) UNKNOWN [Suspect]
  2. GABAPENTIN (GABAPENTIN) [Concomitant]
  3. LISINOPRIL (LISINOPRIL) [Concomitant]
  4. AMBIEN (ZOLPIDEM TARTRATE) [Concomitant]
  5. CLOZAPINE (CLOZAPINE) [Concomitant]

REACTIONS (8)
  - Blood sodium decreased [None]
  - Dysphagia [None]
  - Dyspnoea [None]
  - Fatigue [None]
  - Asthenia [None]
  - Abdominal pain upper [None]
  - Feeling abnormal [None]
  - Myalgia [None]
